FAERS Safety Report 8349802-X (Version None)
Quarter: 2012Q2

REPORT INFORMATION
  Report Type: 
  Country: None (occurrence: None)
  Receive Date: 20120509
  Receipt Date: 20120509
  Transmission Date: 20120825
  Serious: No
  Sender: FDA-Public Use
  Company Number: None

PATIENT
  Age: 59 Year
  Sex: Female

DRUGS (1)
  1. AMANTADINE HCL [Suspect]
     Dosage: 1 TABLET TWICE A DAY

REACTIONS (1)
  - RASH [None]
